FAERS Safety Report 4951401-4 (Version None)
Quarter: 2006Q1

REPORT INFORMATION
  Report Type: 
  Country: None (occurrence: None)
  Receive Date: 20060323
  Receipt Date: 20060315
  Transmission Date: 20060701
  Serious: Yes (Hospitalization)
  Sender: FDA-Public Use
  Company Number: US-JNJFOC-20060304945

PATIENT
  Sex: Female
  Weight: 83.92 kg

DRUGS (11)
  1. DURAGESIC-100 [Suspect]
     Route: 062
  2. DURAGESIC-100 [Suspect]
     Route: 062
  3. LOPRESSOR [Concomitant]
     Route: 048
  4. FLEXERIL [Concomitant]
     Route: 048
  5. XANAX [Concomitant]
     Dosage: 0.5 MG AS NEEDED
     Route: 048
  6. PERCOCET [Concomitant]
     Route: 048
  7. PERCOCET [Concomitant]
     Indication: BACK PAIN
     Dosage: 5 MG/325 MG AS NEEDED
     Route: 048
  8. MOTRIN [Concomitant]
     Route: 048
  9. NEXIUM [Concomitant]
     Route: 048
  10. PHENERGAN HCL [Concomitant]
     Indication: VOMITING
     Route: 048
  11. PHENERGAN HCL [Concomitant]
     Indication: NAUSEA
     Dosage: 25 MG AS NEEDED
     Route: 048

REACTIONS (1)
  - GALLBLADDER DISORDER [None]
